FAERS Safety Report 23658508 (Version 1)
Quarter: 2024Q1

REPORT INFORMATION
  Report Type: Spontaneous
  Country: US (occurrence: None)
  Receive Date: 20240320
  Receipt Date: 20240320
  Transmission Date: 20240410
  Serious: Yes (Hospitalization, Disabling, Other)
  Sender: FDA-Public Use
  Company Number: None

PATIENT
  Age: 35 Year
  Sex: Female

DRUGS (5)
  1. NITROUS OXIDE [Suspect]
     Active Substance: NITROUS OXIDE
     Indication: Labour pain
     Route: 055
     Dates: start: 20240128, end: 20240128
  2. PITOCIN [Suspect]
     Active Substance: OXYTOCIN
  3. Labor antibiotics [Concomitant]
  4. Hyoscyamus [Concomitant]
  5. VITAMINS [Concomitant]
     Active Substance: VITAMINS

REACTIONS (6)
  - Brief psychotic disorder, with postpartum onset [None]
  - Insomnia [None]
  - Paranoia [None]
  - Anger [None]
  - Hallucination [None]
  - Euphoric mood [None]
